FAERS Safety Report 10524228 (Version 1)
Quarter: 2014Q4

REPORT INFORMATION
  Report Type: Spontaneous
  Country: US (occurrence: None)
  Receive Date: 20141015
  Receipt Date: 20141015
  Transmission Date: 20150528
  Serious: Yes (Disabling, Other)
  Sender: FDA-Public Use
  Company Number: None

PATIENT
  Age: 48 Year
  Sex: Female
  Weight: 66.68 kg

DRUGS (3)
  1. LEVOFLOXACIN 500 MG AUROBINDO [Suspect]
     Active Substance: LEVOFLOXACIN
     Indication: POST PROCEDURAL INFECTION
     Dosage: 7 PILLS + DOSES IN HOSPITAL ONCE DAILY TAKEN BY MOUT
     Route: 048
     Dates: start: 20140905, end: 20141011
  2. LEVOFLOXACIN 500 MG AUROBINDO [Suspect]
     Active Substance: LEVOFLOXACIN
     Indication: PROPHYLAXIS
     Dosage: 7 PILLS + DOSES IN HOSPITAL ONCE DAILY TAKEN BY MOUT
     Route: 048
     Dates: start: 20140905, end: 20141011
  3. LEVOFLOXACIN 500 MG AUROBINDO [Suspect]
     Active Substance: LEVOFLOXACIN
     Indication: HYSTERECTOMY
     Dosage: 7 PILLS + DOSES IN HOSPITAL ONCE DAILY TAKEN BY MOUT
     Route: 048
     Dates: start: 20140905, end: 20141011

REACTIONS (11)
  - Arthralgia [None]
  - Pain [None]
  - Pruritus [None]
  - Movement disorder [None]
  - Musculoskeletal pain [None]
  - Pain in extremity [None]
  - Musculoskeletal stiffness [None]
  - Urticaria [None]
  - Eosinophil count increased [None]
  - Inflammatory marker increased [None]
  - Arthropathy [None]

NARRATIVE: CASE EVENT DATE: 20140913
